FAERS Safety Report 12232160 (Version 2)
Quarter: 2016Q2

REPORT INFORMATION
  Report Type: Report from Study
  Country: BR (occurrence: BR)
  Receive Date: 20160401
  Receipt Date: 20160428
  Transmission Date: 20160815
  Serious: Yes (Hospitalization, Other)
  Sender: FDA-Public Use
  Company Number: BR-ABBVIE-16K-020-1595970-00

PATIENT
  Sex: Female

DRUGS (1)
  1. HUMIRA [Suspect]
     Active Substance: ADALIMUMAB
     Indication: PSORIASIS
     Route: 058
     Dates: start: 20120713, end: 201510

REACTIONS (8)
  - Psoriasis [Not Recovered/Not Resolved]
  - Skin exfoliation [Unknown]
  - Eye injury [Not Recovered/Not Resolved]
  - Swelling [Unknown]
  - Skin lesion [Not Recovered/Not Resolved]
  - Skin irritation [Unknown]
  - Skin disorder [Unknown]
  - Adverse drug reaction [Unknown]
